FAERS Safety Report 4827115-8 (Version None)
Quarter: 2005Q4

REPORT INFORMATION
  Report Type: 
  Country: None (occurrence: None)
  Receive Date: 20051114
  Receipt Date: 20051109
  Transmission Date: 20060501
  Serious: Yes (Death, Hospitalization)
  Sender: FDA-Public Use
  Company Number: GR-GLAXOSMITHKLINE-B0400137A

PATIENT
  Age: 76 Year
  Sex: Female

DRUGS (3)
  1. ZINACEF [Suspect]
     Indication: PROPHYLAXIS
     Route: 042
  2. XYLOCAINE [Concomitant]
  3. CORTICOSTEROID [Concomitant]

REACTIONS (2)
  - COMA [None]
  - SYNCOPE [None]
